FAERS Safety Report 23737679 (Version 1)
Quarter: 2024Q2

REPORT INFORMATION
  Report Type: Report from Study
  Country: US (occurrence: US)
  Receive Date: 20240412
  Receipt Date: 20240412
  Transmission Date: 20240716
  Serious: Yes (Other)
  Sender: FDA-Public Use
  Company Number: US-ARGENX-2024-ARGX-US002425

PATIENT

DRUGS (3)
  1. VYVGART HYTRULO [Suspect]
     Active Substance: EFGARTIGIMOD ALFA\HYALURONIDASE-QVFC
     Indication: Myasthenia gravis
     Dosage: UNK, ADMINISTER 1,008 MG AND 11,200 UNITS
     Route: 058
     Dates: start: 20240215
  2. VYVGART [Suspect]
     Active Substance: EFGARTIGIMOD ALFA-FCAB
     Indication: Myasthenia gravis
     Route: 042
  3. EPINEPHRINE [Concomitant]
     Active Substance: EPINEPHRINE
     Indication: Product used for unknown indication
     Dosage: AUTO-INJ
     Route: 065

REACTIONS (6)
  - Choking [Unknown]
  - Eyelid ptosis [Unknown]
  - Dyspnoea exertional [Unknown]
  - Dysarthria [Unknown]
  - Loss of personal independence in daily activities [Unknown]
  - Fatigue [Unknown]
